FAERS Safety Report 23247775 (Version 1)
Quarter: 2023Q4

REPORT INFORMATION
  Report Type: Spontaneous
  Country: US (occurrence: US)
  Receive Date: 20231130
  Receipt Date: 20231130
  Transmission Date: 20240110
  Serious: No
  Sender: FDA-Public Use
  Company Number: US-GLAXOSMITHKLINE-USCH2023055372

PATIENT
  Sex: Female

DRUGS (1)
  1. ALLI [Suspect]
     Active Substance: ORLISTAT
     Indication: Weight loss diet
     Dates: start: 20070701, end: 20231101

REACTIONS (2)
  - Therapeutic response unexpected [Unknown]
  - Product use issue [Unknown]
